FAERS Safety Report 23244009 (Version 1)
Quarter: 2023Q4

REPORT INFORMATION
  Report Type: Spontaneous
  Country: FR (occurrence: FR)
  Receive Date: 20231130
  Receipt Date: 20231130
  Transmission Date: 20240110
  Serious: Yes (Life-Threatening, Other)
  Sender: FDA-Public Use
  Company Number: None

PATIENT
  Age: 85 Year
  Sex: Female
  Weight: 69 kg

DRUGS (1)
  1. ELIQUIS [Suspect]
     Active Substance: APIXABAN
     Indication: Atrial flutter
     Route: 048
     Dates: start: 20230630, end: 20231116

REACTIONS (3)
  - Coma [Not Recovered/Not Resolved]
  - Meningorrhagia [Not Recovered/Not Resolved]
  - Cerebellar haematoma [Not Recovered/Not Resolved]

NARRATIVE: CASE EVENT DATE: 20231116
